FAERS Safety Report 9463149 (Version 1)
Quarter: 2013Q3

REPORT INFORMATION
  Report Type: Spontaneous
  Country: GB (occurrence: GB)
  Receive Date: 20130817
  Receipt Date: 20130817
  Transmission Date: 20140515
  Serious: Yes (Hospitalization)
  Sender: FDA-Public Use
  Company Number: GB-ACCORD-018903

PATIENT
  Age: 72 Year
  Sex: Female

DRUGS (12)
  1. SIMVASTATIN [Suspect]
     Indication: PRODUCT USED FOR UNKNOWN INDICATION
     Dosage: 40 MG, QD
  2. TRAMADOL [Suspect]
     Indication: PRODUCT USED FOR UNKNOWN INDICATION
     Dosage: 50 MG, TID
  3. METYRAPONE [Suspect]
     Indication: CUSHING^S SYNDROME
     Dosage: 1 G, QD
     Dates: start: 20080525
  4. BUMETANIDE [Suspect]
     Indication: PRODUCT USED FOR UNKNOWN INDICATION
     Dosage: 7 MG, QD
  5. MIXTARD [Concomitant]
     Dosage: UNK UKN, UNK
  6. DIGOXIN [Concomitant]
     Dosage: 125 MG, QD
  7. CARBOCISTEINE [Concomitant]
     Dosage: 150 MG, TID
  8. LOSARTAN [Concomitant]
     Dosage: 100 MG, QD
  9. WARFARIN [Concomitant]
     Dosage: UNK UKN, UNK
  10. ISOSORBIDE MONONITRATE [Concomitant]
     Dosage: 20 MG, BID
  11. DILTIAZEM [Concomitant]
     Dosage: UNK UKN, UNK
  12. BENDROFLUMETHIAZIDE [Concomitant]
     Dosage: 2.5 MG, QD

REACTIONS (2)
  - Oedema peripheral [Recovered/Resolved]
  - Dyspnoea [Recovered/Resolved with Sequelae]
